FAERS Safety Report 7238079-4 (Version None)
Quarter: 2011Q1

REPORT INFORMATION
  Report Type: 
  Country: None (occurrence: None)
  Receive Date: 20110121
  Receipt Date: 20110117
  Transmission Date: 20110831
  Serious: Yes (Life-Threatening)
  Sender: FDA-Public Use
  Company Number: B0693887A

PATIENT
  Sex: Male

DRUGS (8)
  1. KETALAR [Suspect]
     Indication: INDUCTION OF ANAESTHESIA
     Route: 042
     Dates: start: 20100511, end: 20100511
  2. AUGMENTIN [Suspect]
     Indication: ANTIBIOTIC PROPHYLAXIS
     Dosage: 1.2G SINGLE DOSE
     Route: 042
     Dates: start: 20100511, end: 20100511
  3. SUFENTA [Suspect]
     Indication: INDUCTION OF ANAESTHESIA
     Dosage: 25MCG PER DAY
     Route: 042
     Dates: start: 20100511, end: 20100511
  4. HYPNOVEL [Suspect]
     Indication: INDUCTION OF ANAESTHESIA
     Dosage: 1MG SINGLE DOSE
     Route: 042
     Dates: start: 20100511, end: 20100511
  5. SUCCINYLCHOLINE CHLORIDE [Suspect]
     Indication: INDUCTION OF ANAESTHESIA
     Dosage: 80MG SINGLE DOSE
     Route: 042
     Dates: start: 20100511, end: 20100511
  6. ACUPAN [Suspect]
     Indication: INDUCTION OF ANAESTHESIA
     Route: 042
     Dates: start: 20100511, end: 20100511
  7. DIPRIVAN [Suspect]
     Indication: INDUCTION OF ANAESTHESIA
     Dosage: 600MG PER DAY
     Route: 042
     Dates: start: 20100511, end: 20100511
  8. PERFALGAN [Suspect]
     Indication: INDUCTION OF ANAESTHESIA
     Dosage: 1G PER DAY
     Route: 042
     Dates: start: 20100511, end: 20100511

REACTIONS (6)
  - HEART RATE INCREASED [None]
  - HISTAMINE LEVEL INCREASED [None]
  - GENERALISED ERYTHEMA [None]
  - BLOOD PRESSURE DECREASED [None]
  - ANAPHYLACTIC SHOCK [None]
  - TRYPTASE INCREASED [None]
